FAERS Safety Report 7559966-3 (Version None)
Quarter: 2011Q2

REPORT INFORMATION
  Report Type: 
  Country: None (occurrence: None)
  Receive Date: 20110614
  Receipt Date: 20110531
  Transmission Date: 20111010
  Serious: Yes (Death, Life-Threatening, Hospitalization)
  Sender: FDA-Public Use
  Company Number: DE-000156

PATIENT
  Age: 64 Year
  Sex: Female

DRUGS (2)
  1. BARIUM SULPHATE (BARIUM SULPHATE) [Suspect]
     Indication: GASTRIC CANCER
     Dosage: 100ML ONCE ORAL
     Route: 048
  2. BARIUM SULPHATE (BARIUM SULPHATE) [Suspect]
     Indication: DIAGNOSTIC PROCEDURE
     Dosage: 100ML ONCE ORAL
     Route: 048

REACTIONS (4)
  - ACUTE RESPIRATORY DISTRESS SYNDROME [None]
  - PNEUMONIA ASPIRATION [None]
  - VOMITING [None]
  - RESPIRATORY FAILURE [None]
